FAERS Safety Report 9056526 (Version 3)
Quarter: 2013Q2

REPORT INFORMATION
  Report Type: Spontaneous
  Country: US (occurrence: US)
  Receive Date: 20130204
  Receipt Date: 20130410
  Transmission Date: 20140414
  Serious: Yes (Other)
  Sender: FDA-Public Use
  Company Number: US-GLAXOSMITHKLINE-A1010623A

PATIENT
  Age: 49 Year
  Sex: Female

DRUGS (10)
  1. LAMICTAL [Suspect]
     Indication: DEPRESSION
     Dosage: 100MG PER DAY
     Route: 065
  2. VIIBRYD [Suspect]
     Indication: DEPRESSION
     Dosage: 10MG PER DAY
     Route: 048
     Dates: start: 2012
  3. COCAINE [Suspect]
  4. SEROQUEL XR [Concomitant]
     Indication: AFFECTIVE DISORDER
     Dosage: 600MG PER DAY
  5. SEROQUEL [Concomitant]
     Indication: AFFECTIVE DISORDER
     Dosage: 200MG PER DAY
  6. ABILIFY [Concomitant]
     Indication: AFFECTIVE DISORDER
     Dosage: 5MG PER DAY
  7. ELAVIL [Concomitant]
     Indication: NEURALGIA
     Dosage: 75MG TWICE PER DAY
  8. CLONAZEPAM [Concomitant]
     Indication: PANIC DISORDER
     Dosage: .5MG FOUR TIMES PER DAY
  9. TEMAZEPAM [Concomitant]
     Indication: INSOMNIA
     Dosage: 45MG PER DAY
  10. PRAZOSIN [Concomitant]
     Indication: NIGHTMARE
     Dosage: 1MG PER DAY

REACTIONS (4)
  - Paralysis [Recovering/Resolving]
  - Abasia [Recovering/Resolving]
  - Toxicity to various agents [Recovered/Resolved]
  - Drug screen positive [Recovered/Resolved]
